FAERS Safety Report 23979491 (Version 5)
Quarter: 2025Q2

REPORT INFORMATION
  Report Type: Spontaneous
  Country: US (occurrence: US)
  Receive Date: 20240616
  Receipt Date: 20250407
  Transmission Date: 20250717
  Serious: Yes (Death, Hospitalization, Other)
  Sender: SANOFI AVENTIS
  Company Number: US-SA-SAC20240610001297

PATIENT
  Age: 64 Year
  Sex: Male
  Weight: 64.86 kg

DRUGS (1)
  1. REZUROCK [Suspect]
     Active Substance: BELUMOSUDIL
     Indication: Acute lymphocytic leukaemia (in remission)
     Dosage: 200 MG, BID
     Route: 048
     Dates: start: 20240518

REACTIONS (10)
  - Death [Fatal]
  - Plasma cell myeloma [Unknown]
  - Bone disorder [Unknown]
  - Pain [Unknown]
  - Pulmonary oedema [Unknown]
  - Lung disorder [Unknown]
  - Insomnia [Recovered/Resolved]
  - Palpitations [Recovered/Resolved]
  - Product use in unapproved indication [Unknown]
  - Inappropriate schedule of product administration [Unknown]

NARRATIVE: CASE EVENT DATE: 20240518
